FAERS Safety Report 8956306 (Version 2)
Quarter: 2012Q4

REPORT INFORMATION
  Report Type: 
  Country: US (occurrence: US)
  Receive Date: 20121210
  Receipt Date: 20121219
  Transmission Date: 20130627
  Serious: Yes (Death)
  Sender: FDA-Public Use
  Company Number: US-FRI-1000040904

PATIENT
  Age: 37 Year
  Sex: Female

DRUGS (3)
  1. VIIBRYD [Suspect]
     Indication: POSTPARTUM DEPRESSION
     Dosage: 10 mg
     Dates: start: 20121119, end: 20121122
  2. PRENATAL VITAMINS [Concomitant]
  3. NEXIUM [Concomitant]

REACTIONS (2)
  - Completed suicide [Fatal]
  - Off label use [Recovered/Resolved]
